FAERS Safety Report 12187608 (Version 1)
Quarter: 2016Q1

REPORT INFORMATION
  Report Type: Spontaneous
  Country: US (occurrence: None)
  Receive Date: 20160316
  Receipt Date: 20160316
  Transmission Date: 20160526
  Serious: Yes (Life-Threatening, Hospitalization, Disabling)
  Sender: FDA-Public Use
  Company Number: None

PATIENT
  Age: 29 Year
  Sex: Male
  Weight: 87.54 kg

DRUGS (3)
  1. RISPERDAL [Suspect]
     Active Substance: RISPERIDONE
     Indication: DRUG THERAPY
     Dates: start: 20080808
  2. HALDOL [Suspect]
     Active Substance: HALOPERIDOL
  3. DEPAKOTE [Suspect]
     Active Substance: DIVALPROEX SODIUM

REACTIONS (2)
  - Renal disorder [None]
  - Liver disorder [None]

NARRATIVE: CASE EVENT DATE: 20080808
